FAERS Safety Report 10725044 (Version 4)
Quarter: 2015Q1

REPORT INFORMATION
  Report Type: Report from Study
  Country: IL (occurrence: IL)
  Receive Date: 20150120
  Receipt Date: 20150213
  Transmission Date: 20150721
  Serious: Yes (Hospitalization)
  Sender: FDA-Public Use
  Company Number: IL-ABBVIE-15P-082-1334191-00

PATIENT
  Age: 56 Year
  Sex: Female

DRUGS (1)
  1. DUODOPA [Suspect]
     Active Substance: CARBIDOPA\LEVODOPA
     Indication: PARKINSON^S DISEASE
     Route: 050

REACTIONS (7)
  - Device dislocation [Recovered/Resolved]
  - Bezoar [Unknown]
  - Duodenal ulcer [Unknown]
  - Abdominal pain [Unknown]
  - Intestinal obstruction [Unknown]
  - Drug administered at inappropriate site [Unknown]
  - Duodenal perforation [Unknown]
